FAERS Safety Report 12287062 (Version 1)
Quarter: 2016Q2

REPORT INFORMATION
  Report Type: Spontaneous
  Country: ES (occurrence: ES)
  Receive Date: 20160420
  Receipt Date: 20160420
  Transmission Date: 20160815
  Serious: Yes (Other)
  Sender: FDA-Public Use
  Company Number: ES-FRESENIUS KABI-FK201601993

PATIENT
  Age: 42 Year
  Sex: Female

DRUGS (1)
  1. GEMCITABINE [Suspect]
     Active Substance: GEMCITABINE\GEMCITABINE HYDROCHLORIDE
     Indication: ADENOCARCINOMA PANCREAS
     Route: 065

REACTIONS (1)
  - Dermatitis infected [Recovered/Resolved]
